FAERS Safety Report 24340588 (Version 1)
Quarter: 2024Q3

REPORT INFORMATION
  Report Type: Spontaneous
  Country: DE (occurrence: DE)
  Receive Date: 20240919
  Receipt Date: 20240919
  Transmission Date: 20241017
  Serious: Yes (Hospitalization, Other)
  Sender: BRISTOL MYERS SQUIBB
  Company Number: DE-BRISTOL-MYERS SQUIBB COMPANY-2024-148569

PATIENT

DRUGS (6)
  1. OPDIVO [Suspect]
     Active Substance: NIVOLUMAB
     Indication: Colorectal cancer
     Dates: start: 20221024
  2. OPDIVO [Suspect]
     Active Substance: NIVOLUMAB
     Dates: start: 20230413
  3. OPDIVO [Suspect]
     Active Substance: NIVOLUMAB
     Dates: start: 20230502
  4. OPDIVO [Suspect]
     Active Substance: NIVOLUMAB
     Dates: start: 20231005
  5. OPDIVO [Suspect]
     Active Substance: NIVOLUMAB
     Dates: start: 20240910, end: 20240912
  6. IPILIMUMAB [Suspect]
     Active Substance: IPILIMUMAB
     Indication: Colorectal cancer

REACTIONS (6)
  - Arthritis [Not Recovered/Not Resolved]
  - Haemoglobin decreased [Unknown]
  - Iron deficiency [Unknown]
  - Melaena [Unknown]
  - Gastritis [Recovered/Resolved]
  - Enteritis [Unknown]

NARRATIVE: CASE EVENT DATE: 20230101
